FAERS Safety Report 7920835-8 (Version None)
Quarter: 2011Q4

REPORT INFORMATION
  Report Type: 
  Country: None (occurrence: None)
  Receive Date: 20111117
  Receipt Date: 20110728
  Transmission Date: 20120403
  Serious: No
  Sender: FDA-Public Use
  Company Number: US-GLAXOSMITHKLINE-A0939559A

PATIENT
  Age: 72 Year
  Sex: Male

DRUGS (8)
  1. CLARITHROMYCIN [Suspect]
     Indication: PRODUCT USED FOR UNKNOWN INDICATION
  2. ALPRAZOLAM [Concomitant]
  3. GLYBURIDE [Concomitant]
  4. SYNTHROID [Concomitant]
  5. COZAAR [Concomitant]
  6. DIGOXIN [Concomitant]
  7. VOTRIENT [Suspect]
     Indication: RENAL CANCER
     Dosage: 800MG PER DAY
     Route: 048
     Dates: start: 20090710
  8. UNKNOWN [Concomitant]

REACTIONS (1)
  - DRUG INTERACTION [None]
